FAERS Safety Report 8950897 (Version 1)
Quarter: 2012Q4

REPORT INFORMATION
  Report Type: 
  Country: US (occurrence: US)
  Receive Date: 20121207
  Receipt Date: 20121207
  Transmission Date: 20130627
  Serious: Yes (Hospitalization)
  Sender: FDA-Public Use
  Company Number: US-BAXTER-2012BAX025865

PATIENT
  Sex: Female

DRUGS (10)
  1. GAMMAGARD LIQUID [Suspect]
     Indication: IMMUNODEFICIENCY
     Dosage: Increased over time
     Route: 042
     Dates: start: 201109
  2. IMMUNOGLOBULIN HUMAN NORMAL [Suspect]
     Indication: IMMUNODEFICIENCY
     Route: 042
     Dates: start: 201210
  3. IMMUNOGLOBULIN HUMAN NORMAL [Suspect]
     Route: 042
     Dates: start: 201211
  4. FUROSEMIDE [Concomitant]
     Indication: DRUG USE FOR UNKNOWN INDICATION
     Route: 065
  5. FUROSEMIDE [Concomitant]
     Indication: ADVERSE EVENT
  6. LISINOPRIL [Concomitant]
     Indication: BLOOD PRESSURE
     Route: 065
  7. AMLODIPINE [Concomitant]
     Indication: BLOOD PRESSURE
     Route: 065
  8. NEURONTIN [Concomitant]
     Indication: DRUG USE FOR UNKNOWN INDICATION
     Route: 065
  9. OXYCODONE [Concomitant]
     Indication: DRUG USE FOR UNKNOWN INDICATION
     Route: 065
  10. BACLOFEN [Concomitant]
     Indication: DRUG USE FOR UNKNOWN INDICATION
     Route: 065

REACTIONS (6)
  - Pneumonia [Unknown]
  - Cardiac failure congestive [Unknown]
  - Dyspnoea [Unknown]
  - Oxygen saturation decreased [Unknown]
  - Tremor [Recovered/Resolved]
  - Muscle spasms [Recovered/Resolved]
